FAERS Safety Report 12374157 (Version 1)
Quarter: 2016Q2

REPORT INFORMATION
  Report Type: Spontaneous
  Country: US (occurrence: US)
  Receive Date: 20160517
  Receipt Date: 20160517
  Transmission Date: 20160815
  Serious: No
  Sender: FDA-Public Use
  Company Number: US-HORIZON-PEN-0221-2016

PATIENT
  Age: 62 Year
  Sex: Female

DRUGS (1)
  1. PENNSAID [Suspect]
     Active Substance: DICLOFENAC SODIUM
     Indication: ARTHRALGIA
     Dosage: 1-2 TIMES DAILY AS NEEDED

REACTIONS (2)
  - Dysgeusia [Not Recovered/Not Resolved]
  - Off label use [Unknown]
